FAERS Safety Report 25910421 (Version 1)
Quarter: 2025Q4

REPORT INFORMATION
  Report Type: Report from Study
  Country: ZA (occurrence: ZA)
  Receive Date: 20251012
  Receipt Date: 20251012
  Transmission Date: 20260118
  Serious: Yes (Other)
  Sender: ABBVIE
  Company Number: ZA-ABBVIE-6494788

PATIENT
  Sex: Male

DRUGS (1)
  1. OZURDEX [Suspect]
     Active Substance: DEXAMETHASONE
     Indication: Macular degeneration
     Dosage: TIME INTERVAL: AS NECESSARY: FREQUENCY TEXT: EVERY 4 TO 6 MONTHS
     Route: 050
     Dates: start: 20240926

REACTIONS (1)
  - Chemotherapy [Unknown]
